FAERS Safety Report 15335494 (Version 4)
Quarter: 2018Q3

REPORT INFORMATION
  Report Type: Spontaneous
  Country: US (occurrence: US)
  Receive Date: 20180830
  Receipt Date: 20180928
  Transmission Date: 20181010
  Serious: Yes (Hospitalization, Disabling, Other)
  Sender: FDA-Public Use
  Company Number: US-ASTRAZENECA-2018SF01501

PATIENT
  Age: 769 Month
  Sex: Male
  Weight: 82.1 kg

DRUGS (11)
  1. FASENRA [Suspect]
     Active Substance: BENRALIZUMAB
     Indication: ASTHMA
     Dosage: 30MG/1ML EVERY 4 WEEKS X 3 MONTHS THEN 30MG/1ML EVERY 8 WEEKS THEREAFTER.
     Route: 058
     Dates: start: 20180604
  2. VENTOLIN [Concomitant]
     Active Substance: ALBUTEROL SULFATE
  3. NORVASC [Concomitant]
     Active Substance: AMLODIPINE BESYLATE
  4. FASENRA [Suspect]
     Active Substance: BENRALIZUMAB
     Indication: ASTHMA
     Dosage: 30MG/1ML EVERY 4 WEEKS X 3 MONTHS THEN 30MG/1ML EVERY 8 WEEKS THEREAFTER.
     Route: 058
     Dates: start: 201807, end: 20180815
  5. SYMBICORT [Suspect]
     Active Substance: BUDESONIDE\FORMOTEROL FUMARATE DIHYDRATE
     Dosage: 2 PUFFS, TWO TIMES A DAY
     Route: 055
     Dates: start: 20180223
  6. FLUTICASONE. [Concomitant]
     Active Substance: FLUTICASONE
  7. FASENRA [Suspect]
     Active Substance: BENRALIZUMAB
     Indication: POLYP
     Dosage: 30MG/1ML EVERY 4 WEEKS X 3 MONTHS THEN 30MG/1ML EVERY 8 WEEKS THEREAFTER.
     Route: 058
     Dates: start: 201807, end: 20180815
  8. MONTELUKAST SODIUM. [Concomitant]
     Active Substance: MONTELUKAST SODIUM
     Dates: start: 20180223
  9. POTASSIUM [Concomitant]
     Active Substance: POTASSIUM
  10. FASENRA [Suspect]
     Active Substance: BENRALIZUMAB
     Indication: POLYP
     Dosage: 30MG/1ML EVERY 4 WEEKS X 3 MONTHS THEN 30MG/1ML EVERY 8 WEEKS THEREAFTER.
     Route: 058
     Dates: start: 20180604
  11. HYDROCHLOROTHIAZIDE. [Concomitant]
     Active Substance: HYDROCHLOROTHIAZIDE

REACTIONS (13)
  - Arteriosclerosis coronary artery [Unknown]
  - Benign prostatic hyperplasia [Unknown]
  - Gastroduodenitis [Unknown]
  - Renal cyst [Not Recovered/Not Resolved]
  - Hydrocele [Unknown]
  - Diabetes mellitus [Not Recovered/Not Resolved]
  - Pleural effusion [Unknown]
  - Bladder hypertrophy [Unknown]
  - Atelectasis [Not Recovered/Not Resolved]
  - Prostatomegaly [Unknown]
  - Nephrolithiasis [Unknown]
  - Pericardial effusion [Unknown]
  - Hepatic cyst [Unknown]

NARRATIVE: CASE EVENT DATE: 201806
